FAERS Safety Report 13767855 (Version 2)
Quarter: 2017Q4

REPORT INFORMATION
  Report Type: Spontaneous
  Country: US (occurrence: US)
  Receive Date: 20170719
  Receipt Date: 20171218
  Transmission Date: 20180320
  Serious: No
  Sender: FDA-Public Use
  Company Number: US-PFIZER INC-2017305854

PATIENT
  Age: 53 Year
  Sex: Female
  Weight: 53.52 kg

DRUGS (7)
  1. METHOTREXATE. [Concomitant]
     Active Substance: METHOTREXATE
     Indication: PSORIATIC ARTHROPATHY
  2. XELJANZ [Suspect]
     Active Substance: TOFACITINIB CITRATE
     Dosage: 5 MG, 2X/DAY
     Route: 048
  3. OTEZLA [Suspect]
     Active Substance: APREMILAST
     Dosage: 30 MG, UNK
     Route: 048
     Dates: start: 201706, end: 20170629
  4. METHOTREXATE. [Concomitant]
     Active Substance: METHOTREXATE
     Indication: RHEUMATOID ARTHRITIS
     Dosage: 25 MG, UNK
     Route: 058
  5. OTEZLA [Suspect]
     Active Substance: APREMILAST
     Dosage: 20 MG, ONCE A DAY
     Route: 048
     Dates: start: 201706, end: 201706
  6. XELJANZ [Suspect]
     Active Substance: TOFACITINIB CITRATE
     Indication: RHEUMATOID ARTHRITIS
     Dosage: 5 MG, 2X/DAY
     Route: 048
     Dates: start: 201701
  7. OTEZLA [Suspect]
     Active Substance: APREMILAST
     Indication: PSORIATIC ARTHROPATHY
     Dosage: 10 MG,OVER A 7-DAY PERIOD
     Route: 048
     Dates: start: 20170610, end: 201706

REACTIONS (6)
  - Muscle spasms [Unknown]
  - Weight decreased [Unknown]
  - Malaise [Unknown]
  - Influenza like illness [Unknown]
  - Diarrhoea [Unknown]
  - Gastritis [Unknown]

NARRATIVE: CASE EVENT DATE: 201706
